FAERS Safety Report 17996077 (Version 1)
Quarter: 2020Q3

REPORT INFORMATION
  Report Type: Spontaneous
  Country: ES (occurrence: ES)
  Receive Date: 20200708
  Receipt Date: 20200708
  Transmission Date: 20201103
  Serious: Yes (Hospitalization)
  Sender: FDA-Public Use
  Company Number: ES-TEVA-2020-ES-1796891

PATIENT
  Age: 24 Year
  Sex: Male
  Weight: 71 kg

DRUGS (2)
  1. RISPERIDONA TEVA 1 MG COMPRIMIDOS RECUBIERTOS CON PELICULA EFG, 60 COM [Suspect]
     Active Substance: RISPERIDONE
     Indication: PRODUCT USE IN UNAPPROVED INDICATION
     Dosage: 2 MG,1?3 TABLETS (ON DEMAND) BEFORE BED TO TREAT TRANSIENT NERVOUS INSOMNIA
     Route: 048
     Dates: start: 20200522, end: 20200619
  2. RISPERIDONA TEVA 1 MG COMPRIMIDOS RECUBIERTOS CON PELICULA EFG, 60 COM [Suspect]
     Active Substance: RISPERIDONE
     Indication: INSOMNIA

REACTIONS (2)
  - Neuroleptic malignant syndrome [Not Recovered/Not Resolved]
  - Haematuria [Not Recovered/Not Resolved]

NARRATIVE: CASE EVENT DATE: 20200605
